FAERS Safety Report 17206171 (Version 3)
Quarter: 2020Q1

REPORT INFORMATION
  Report Type: Spontaneous
  Country: US (occurrence: US)
  Receive Date: 20191227
  Receipt Date: 20200219
  Transmission Date: 20200409
  Serious: No
  Sender: FDA-Public Use
  Company Number: US-SHIRE-US201944205

PATIENT
  Sex: Female
  Weight: 53.52 kg

DRUGS (1)
  1. XIIDRA [Suspect]
     Active Substance: LIFITEGRAST
     Indication: DRY EYE
     Dosage: 1 GTT DROPS, 2X/DAY:BID
     Route: 047
     Dates: start: 2016

REACTIONS (16)
  - Product residue present [Not Recovered/Not Resolved]
  - Adverse event [Not Recovered/Not Resolved]
  - Liquid product physical issue [Not Recovered/Not Resolved]
  - Product packaging difficult to open [Unknown]
  - Superficial injury of eye [Unknown]
  - Vision blurred [Not Recovered/Not Resolved]
  - Visual impairment [Not Recovered/Not Resolved]
  - Headache [Unknown]
  - Frustration tolerance decreased [Not Recovered/Not Resolved]
  - Sinusitis [Unknown]
  - Eye disorder [Unknown]
  - Eye discharge [Not Recovered/Not Resolved]
  - Eye pain [Not Recovered/Not Resolved]
  - Condition aggravated [Not Recovered/Not Resolved]
  - Eye irritation [Not Recovered/Not Resolved]
  - Ocular discomfort [Not Recovered/Not Resolved]

NARRATIVE: CASE EVENT DATE: 2016
